FAERS Safety Report 17560058 (Version 1)
Quarter: 2020Q1

REPORT INFORMATION
  Report Type: Spontaneous
  Country: US (occurrence: US)
  Receive Date: 20200318
  Receipt Date: 20200318
  Transmission Date: 20200409
  Serious: Yes (Hospitalization)
  Sender: FDA-Public Use
  Company Number: None

PATIENT
  Age: 57 Year
  Sex: Female
  Weight: 84 kg

DRUGS (10)
  1. MULTIPLE VITAMIN 1 TAB PO DAILY [Concomitant]
  2. TRAMADOL 50 MG PO Q4H PRN [Concomitant]
  3. PANTOPRAZOLE 40 MG PO DAILY [Concomitant]
  4. METOPROLOLSUCCINATE100MG POQ12H [Concomitant]
  5. CARFILZOMIB [Suspect]
     Active Substance: CARFILZOMIB
     Indication: PLASMA CELL MYELOMA
     Route: 041
     Dates: start: 20191215, end: 20191216
  6. CARFILZOMIB [Suspect]
     Active Substance: CARFILZOMIB
     Indication: PLASMA CELL MYELOMA
     Route: 041
     Dates: start: 20191222, end: 20191223
  7. BACTRIM DS800-160 MG PO BID SAT/SUN [Concomitant]
  8. ACYCLOVIR 400 MG PO BID [Concomitant]
  9. ALBUTEROL 0.083% Q4H PRN [Concomitant]
  10. FOLIC ACID 1 MG PO BID [Concomitant]

REACTIONS (2)
  - Stem cell transplant [None]
  - Dyspnoea [None]

NARRATIVE: CASE EVENT DATE: 20200308
